FAERS Safety Report 5497889-4 (Version None)
Quarter: 2007Q4

REPORT INFORMATION
  Report Type: 
  Country: None (occurrence: None)
  Receive Date: 20071025
  Receipt Date: 20071018
  Transmission Date: 20080405
  Serious: Yes (Life-Threatening, Hospitalization)
  Sender: FDA-Public Use
  Company Number: US-SHR-US-2007-039625

PATIENT
  Age: 18 Year
  Sex: Female
  Weight: 52.154 kg

DRUGS (1)
  1. MAGNEVIST [Suspect]
     Dosage: 20 ML, 1 DOSE VIA POWER INJECT
     Route: 042
     Dates: start: 20071002, end: 20071002

REACTIONS (4)
  - DYSPHAGIA [None]
  - DYSPNOEA [None]
  - LIP SWELLING [None]
  - SPEECH DISORDER [None]
